FAERS Safety Report 12964221 (Version 1)
Quarter: 2016Q4

REPORT INFORMATION
  Report Type: Spontaneous
  Country: DE (occurrence: DE)
  Receive Date: 20161122
  Receipt Date: 20161122
  Transmission Date: 20170207
  Serious: Yes (Death, Hospitalization)
  Sender: FDA-Public Use
  Company Number: DE-SA-2016SA211994

PATIENT
  Age: 79 Year
  Sex: Female

DRUGS (1)
  1. CLEXANE [Suspect]
     Active Substance: ENOXAPARIN SODIUM
     Indication: ANTICOAGULANT THERAPY
     Dosage: STOP 2-3 DAYS BEFORE DEATH
     Route: 065
     Dates: start: 201609

REACTIONS (2)
  - Death [Fatal]
  - Haemorrhage [Fatal]

NARRATIVE: CASE EVENT DATE: 2016
